FAERS Safety Report 4694946-7 (Version None)
Quarter: 2005Q2

REPORT INFORMATION
  Report Type: 
  Country: None (occurrence: None)
  Receive Date: 20050620
  Receipt Date: 20050613
  Transmission Date: 20051028
  Serious: Yes (Hospitalization)
  Sender: FDA-Public Use
  Company Number: 200511803GDS

PATIENT
  Age: 48 Year
  Sex: Female

DRUGS (3)
  1. ASPIRIN [Suspect]
     Dosage: 100 MG, QD, ORAL
     Route: 048
     Dates: start: 20050501
  2. LIQUEMINE (HEPARIN SODIUM) [Suspect]
     Dosage: 5000 IU, TOTAL DAILY, SUBCUTANEOUS
     Route: 058
     Dates: start: 20050501
  3. ACTIVASE [Suspect]
     Dosage: QD, INTRAVENOUS
     Route: 042
     Dates: start: 20050507

REACTIONS (8)
  - CEREBELLAR HAEMORRHAGE [None]
  - CEREBRAL HAEMORRHAGE [None]
  - GAZE PALSY [None]
  - HEMIPLEGIA [None]
  - HYPERTONIA [None]
  - ISCHAEMIC STROKE [None]
  - MONOPARESIS [None]
  - SPEECH DISORDER [None]
